FAERS Safety Report 19092916 (Version 12)
Quarter: 2021Q4

REPORT INFORMATION
  Report Type: Report from Study
  Country: US (occurrence: US)
  Receive Date: 20210405
  Receipt Date: 20211209
  Transmission Date: 20220303
  Serious: Yes (Hospitalization, Other)
  Sender: FDA-Public Use
  Company Number: US-NOVARTISPH-NVSC2021US077004

PATIENT
  Age: 64 Year
  Sex: Female
  Weight: 83.9 kg

DRUGS (9)
  1. TREPROSTINIL [Suspect]
     Active Substance: TREPROSTINIL
     Indication: Pulmonary arterial hypertension
     Dosage: 26 NG/KG/MIN, CONT
     Route: 042
     Dates: start: 20210330
  2. TREPROSTINIL [Suspect]
     Active Substance: TREPROSTINIL
     Dosage: 34 NG/KG/MIN, CONT
     Route: 042
  3. TREPROSTINIL [Suspect]
     Active Substance: TREPROSTINIL
     Dosage: 41 NG/KG/MIN, CONT
     Route: 042
  4. TREPROSTINIL [Suspect]
     Active Substance: TREPROSTINIL
     Dosage: 52 NG/KG/MIN, CONT
     Route: 042
  5. TREPROSTINIL [Suspect]
     Active Substance: TREPROSTINIL
     Dosage: 56 NG/KG/MIN, CONT
     Route: 065
  6. TREPROSTINIL [Suspect]
     Active Substance: TREPROSTINIL
     Dosage: 52 NG/KG/MIN, CONT
     Route: 042
  7. TREPROSTINIL [Suspect]
     Active Substance: TREPROSTINIL
     Dosage: 61 NG/KG/MIN, CONT
     Route: 042
  8. ASPIRIN [Suspect]
     Active Substance: ASPIRIN
     Indication: Product used for unknown indication
     Dosage: UNK
     Route: 065
  9. SILDENAFIL CITRATE [Concomitant]
     Active Substance: SILDENAFIL CITRATE
     Indication: Product used for unknown indication
     Dosage: UNK
     Route: 065

REACTIONS (18)
  - Syncope [Unknown]
  - Infusion site infection [Unknown]
  - Loss of consciousness [Unknown]
  - Pain in extremity [Unknown]
  - Infusion site hypersensitivity [Unknown]
  - Dizziness [Unknown]
  - Head injury [Unknown]
  - Spinal column injury [Unknown]
  - Fall [Unknown]
  - Application site irritation [Unknown]
  - Infusion site erythema [Unknown]
  - Infusion site pain [Unknown]
  - Epistaxis [Unknown]
  - Infusion site swelling [Unknown]
  - Nausea [Unknown]
  - Diarrhoea [Unknown]
  - Pain in jaw [Unknown]
  - Device alarm issue [Unknown]

NARRATIVE: CASE EVENT DATE: 20210918
